FAERS Safety Report 7055458-9 (Version None)
Quarter: 2010Q4

REPORT INFORMATION
  Report Type: 
  Country: None (occurrence: None)
  Receive Date: 20101021
  Receipt Date: 20101012
  Transmission Date: 20110411
  Serious: Yes (Other)
  Sender: FDA-Public Use
  Company Number: AU-BAYER-201042309GPV

PATIENT
  Age: 60 Year
  Sex: Male

DRUGS (2)
  1. LEUKINE [Suspect]
     Indication: PROSTATE CANCER
     Dosage: TOTAL DAILY DOSE: 250 ?G
     Route: 058
     Dates: start: 20070101, end: 20091201
  2. LEUKINE [Suspect]
     Dosage: AS USED: 250 ?G
     Route: 058

REACTIONS (2)
  - ATRIAL FIBRILLATION [None]
  - TACHYCARDIA [None]
